FAERS Safety Report 6197302-8 (Version None)
Quarter: 2009Q2

REPORT INFORMATION
  Report Type: 
  Country: None (occurrence: None)
  Receive Date: 20090521
  Receipt Date: 20090520
  Transmission Date: 20091009
  Serious: Yes (Other)
  Sender: FDA-Public Use
  Company Number: GR-JNJFOC-20090406677

PATIENT
  Age: 5 Decade
  Sex: Female

DRUGS (5)
  1. DAKTARIN ORAL GEL [Suspect]
     Route: 048
  2. DAKTARIN ORAL GEL [Suspect]
     Indication: ORAL FUNGAL INFECTION
     Route: 048
  3. ZOLOFT [Concomitant]
     Indication: INSOMNIA
  4. ZOLPIDEM TARTRATE [Concomitant]
     Indication: DEPRESSION
  5. NISTATIN [Concomitant]
     Route: 065

REACTIONS (2)
  - DRUG INEFFECTIVE [None]
  - MOUTH ULCERATION [None]
